FAERS Safety Report 4749602-3 (Version None)
Quarter: 2005Q3

REPORT INFORMATION
  Report Type: 
  Country: None (occurrence: None)
  Receive Date: 20050819
  Receipt Date: 20050819
  Transmission Date: 20060218
  Serious: Yes (Hospitalization)
  Sender: FDA-Public Use
  Company Number: None

PATIENT
  Age: 73 Year
  Sex: Male
  Weight: 64.9097 kg

DRUGS (10)
  1. PLAVIX [Suspect]
     Dosage: 75MG   EVERY DAY  PO
     Route: 048
     Dates: start: 20010125, end: 20050718
  2. IBUPROFEN [Concomitant]
  3. CLOPIDOGREL BISULFATE [Concomitant]
  4. OXYCODONE AND ACETAMINOPHEN [Concomitant]
  5. METHADONE HCL [Concomitant]
  6. FINASTERIDE [Concomitant]
  7. BRIMONIDINE TARTRATE [Concomitant]
  8. ALBUTEROL [Concomitant]
  9. IPRATROPIUM BROMIDE [Concomitant]
  10. RANIT [Concomitant]

REACTIONS (5)
  - ASTHENIA [None]
  - FATIGUE [None]
  - GASTRIC HAEMORRHAGE [None]
  - HAEMATOCRIT DECREASED [None]
  - MELAENA [None]
